FAERS Safety Report 18594447 (Version 6)
Quarter: 2024Q3

REPORT INFORMATION
  Report Type: Report from Study
  Country: DE (occurrence: DE)
  Receive Date: 20201209
  Receipt Date: 20240913
  Transmission Date: 20241017
  Serious: Yes (Hospitalization)
  Sender: JOHNSON AND JOHNSON
  Company Number: DE-JNJFOC-20200422024

PATIENT
  Age: 4 Decade
  Sex: Female

DRUGS (10)
  1. SIMPONI [Suspect]
     Active Substance: GOLIMUMAB
     Indication: Psoriatic arthropathy
     Route: 058
     Dates: start: 20190424
  2. SIMPONI [Suspect]
     Active Substance: GOLIMUMAB
     Route: 058
     Dates: start: 20220831, end: 20240117
  3. DICLOFENAC [Concomitant]
     Active Substance: DICLOFENAC
     Dosage: PER WEEK
     Dates: start: 20190215, end: 20191101
  4. METHOTREXATE SODIUM [Concomitant]
     Active Substance: METHOTREXATE SODIUM
     Dosage: 10 MG WEEKLY
     Dates: start: 20191115, end: 20191115
  5. METHOTREXATE SODIUM [Concomitant]
     Active Substance: METHOTREXATE SODIUM
     Dosage: 10 MG WEEKLY
     Dates: start: 20200722
  6. TALTZ [Concomitant]
     Active Substance: IXEKIZUMAB
     Dates: start: 20181114
  7. TALTZ [Concomitant]
     Active Substance: IXEKIZUMAB
     Dates: start: 20181114
  8. BIMZELX [BIMEKIZUMAB] [Concomitant]
     Indication: Psoriatic arthropathy
     Dates: start: 20240220
  9. DULOXETINE [Concomitant]
     Active Substance: DULOXETINE
  10. METAMIZOLE [Concomitant]
     Active Substance: METAMIZOLE

REACTIONS (14)
  - Diagnostic procedure [Recovered/Resolved]
  - Psoriasis [Recovered/Resolved]
  - Arthralgia [Not Recovered/Not Resolved]
  - Influenza like illness [Unknown]
  - Pulpitis dental [Unknown]
  - Photosensitivity reaction [Unknown]
  - Varicose vein [Unknown]
  - Haemorrhoids [Unknown]
  - Eye pruritus [Unknown]
  - Abscess neck [Unknown]
  - Nasopharyngitis [Not Recovered/Not Resolved]
  - Nausea [Not Recovered/Not Resolved]
  - Alopecia [Not Recovered/Not Resolved]
  - Fall [Not Recovered/Not Resolved]

NARRATIVE: CASE EVENT DATE: 20190701
